FAERS Safety Report 11493644 (Version 3)
Quarter: 2016Q1

REPORT INFORMATION
  Report Type: Report from Study
  Country: JP (occurrence: JP)
  Receive Date: 20150911
  Receipt Date: 20160129
  Transmission Date: 20160525
  Serious: Yes (Hospitalization)
  Sender: FDA-Public Use
  Company Number: JP-UCBSA-2015003518

PATIENT
  Age: 18 Year
  Sex: Male
  Weight: 82 kg

DRUGS (19)
  1. LEVETIRACETAM. [Suspect]
     Active Substance: LEVETIRACETAM
     Indication: PARTIAL SEIZURES WITH SECONDARY GENERALISATION
     Dosage: 375 MG, 2X/DAY (BID)
     Route: 048
     Dates: start: 20141004, end: 20141114
  2. LAMICTAL [Suspect]
     Active Substance: LAMOTRIGINE
     Indication: SIMPLE PARTIAL SEIZURES
     Dosage: DAILY DOSE: 200 MG
     Route: 048
     Dates: end: 20150116
  3. LAMICTAL [Suspect]
     Active Substance: LAMOTRIGINE
     Indication: COMPLEX PARTIAL SEIZURES
     Dosage: DAILY DOSE: 175 MG
     Route: 048
     Dates: start: 20150117, end: 20150306
  4. LEVETIRACETAM. [Suspect]
     Active Substance: LEVETIRACETAM
     Dosage: 500 MG, 2X/DAY (BID)
     Route: 048
     Dates: start: 20141115, end: 20150306
  5. LAMICTAL [Suspect]
     Active Substance: LAMOTRIGINE
     Dosage: DAILY DOSE: 100 MG
     Route: 048
     Dates: start: 20150516
  6. EXCEGRAN [Suspect]
     Active Substance: ZONISAMIDE
     Indication: SIMPLE PARTIAL SEIZURES
     Dosage: DAILY DOSE : 400 MG
     Route: 048
  7. MYSTAN [Suspect]
     Active Substance: CLOBAZAM
     Indication: PARTIAL SEIZURES WITH SECONDARY GENERALISATION
  8. LEVETIRACETAM. [Suspect]
     Active Substance: LEVETIRACETAM
     Indication: COMPLEX PARTIAL SEIZURES
     Dosage: 250 MG, 2X/DAY (BID)
     Route: 048
     Dates: start: 20140830, end: 20141003
  9. LAMICTAL [Suspect]
     Active Substance: LAMOTRIGINE
     Dosage: DAILY DOSE: 125 MG
     Route: 048
     Dates: start: 20150411, end: 20150515
  10. MYSTAN [Suspect]
     Active Substance: CLOBAZAM
     Indication: SIMPLE PARTIAL SEIZURES
     Dosage: DAILY DOSE : 10 MG
  11. LEVETIRACETAM. [Suspect]
     Active Substance: LEVETIRACETAM
     Dosage: 1000 MG, 2X/DAY (BID)
     Route: 048
     Dates: start: 20150630, end: 20150703
  12. LAMICTAL [Suspect]
     Active Substance: LAMOTRIGINE
     Indication: PARTIAL SEIZURES WITH SECONDARY GENERALISATION
     Dosage: DAILY DOSE: 150 MG
     Route: 048
     Dates: start: 20150307, end: 20150410
  13. MYSTAN [Suspect]
     Active Substance: CLOBAZAM
     Indication: COMPLEX PARTIAL SEIZURES
  14. EXCEGRAN [Suspect]
     Active Substance: ZONISAMIDE
     Indication: COMPLEX PARTIAL SEIZURES
  15. EXCEGRAN [Suspect]
     Active Substance: ZONISAMIDE
     Indication: PARTIAL SEIZURES WITH SECONDARY GENERALISATION
  16. LEVETIRACETAM. [Suspect]
     Active Substance: LEVETIRACETAM
     Indication: SIMPLE PARTIAL SEIZURES
     Dosage: 125 MG, 2X/DAY (BID)
     Route: 048
     Dates: start: 20140725, end: 20140829
  17. LEVETIRACETAM. [Suspect]
     Active Substance: LEVETIRACETAM
     Dosage: 625 MG, 2X/DAY (BID)
     Route: 048
     Dates: start: 20150307, end: 20150410
  18. LEVETIRACETAM. [Suspect]
     Active Substance: LEVETIRACETAM
     Dosage: 750 MG, 2X/DAY (BID)
     Route: 048
     Dates: start: 20150411, end: 20150515
  19. LEVETIRACETAM. [Suspect]
     Active Substance: LEVETIRACETAM
     Dosage: 875 MG, 2X/DAY (BID)
     Route: 048
     Dates: start: 20150516, end: 20150629

REACTIONS (3)
  - Gamma-glutamyltransferase increased [Unknown]
  - Facial spasm [Recovering/Resolving]
  - Psychogenic seizure [Recovering/Resolving]

NARRATIVE: CASE EVENT DATE: 20141206
